FAERS Safety Report 6691013-8 (Version None)
Quarter: 2010Q2

REPORT INFORMATION
  Report Type: 
  Country: None (occurrence: None)
  Receive Date: 20100421
  Receipt Date: 20100414
  Transmission Date: 20101027
  Serious: Yes (Other)
  Sender: FDA-Public Use
  Company Number: US-MERCK-1004USA02124

PATIENT
  Age: 48 Year
  Sex: Female

DRUGS (3)
  1. SINGULAIR [Suspect]
     Indication: DRUG USE FOR UNKNOWN INDICATION
     Route: 048
     Dates: start: 20100101
  2. PERCOCET [Suspect]
     Indication: SINUS DISORDER
     Route: 048
     Dates: start: 20090901
  3. PERCOCET [Suspect]
     Indication: FACIAL PAIN
     Route: 048
     Dates: start: 20090901

REACTIONS (1)
  - RESPIRATORY ARREST [None]
